FAERS Safety Report 4437450-3 (Version None)
Quarter: 2004Q3

REPORT INFORMATION
  Report Type: 
  Country: None (occurrence: None)
  Receive Date: 20040830
  Receipt Date: 20030929
  Transmission Date: 20050211
  Serious: Yes (Hospitalization, Disabling)
  Sender: FDA-Public Use
  Company Number: US-MERCK-0310USA00079

PATIENT
  Age: 64 Year
  Sex: Male
  Weight: 87 kg

DRUGS (3)
  1. TYLENOL [Concomitant]
     Route: 065
  2. VIOXX [Suspect]
     Indication: ARTHRITIS
     Route: 048
     Dates: start: 19990101
  3. VIOXX [Suspect]
     Indication: PAIN
     Route: 048
     Dates: start: 19990101

REACTIONS (37)
  - ABASIA [None]
  - ABDOMINAL PAIN [None]
  - ADVERSE EVENT [None]
  - ANOREXIA [None]
  - AORTIC OCCLUSION [None]
  - ASTHENIA [None]
  - BACK PAIN [None]
  - BLOOD DISORDER [None]
  - BRONCHITIS [None]
  - CEREBRAL ATROPHY [None]
  - CHEST PAIN [None]
  - CONSTIPATION [None]
  - CONTUSION [None]
  - DISABILITY [None]
  - EMOTIONAL DISTRESS [None]
  - EXCORIATION [None]
  - FALL [None]
  - GAIT SPASTIC [None]
  - GOUT [None]
  - HEADACHE [None]
  - HYPERLIPIDAEMIA [None]
  - INSOMNIA [None]
  - INTERMITTENT CLAUDICATION [None]
  - LACERATION [None]
  - LOW DENSITY LIPOPROTEIN INCREASED [None]
  - LUNG INFILTRATION [None]
  - MALAISE [None]
  - MUSCLE SPASTICITY [None]
  - NASOPHARYNGITIS [None]
  - OBSTRUCTION [None]
  - PAINFUL RESPIRATION [None]
  - PERIPHERAL CIRCULATORY FAILURE [None]
  - PERONEAL NERVE PALSY [None]
  - POOR PERIPHERAL CIRCULATION [None]
  - ROAD TRAFFIC ACCIDENT [None]
  - SKIN LACERATION [None]
  - WEIGHT DECREASED [None]
